FAERS Safety Report 16074687 (Version 1)
Quarter: 2019Q1

REPORT INFORMATION
  Report Type: Spontaneous
  Country: DE (occurrence: DE)
  Receive Date: 20190314
  Receipt Date: 20190314
  Transmission Date: 20190418
  Serious: Yes (Hospitalization)
  Sender: FDA-Public Use
  Company Number: DE-BIODELIVERY SCIENCES INTERNATIONAL-2018BDSI0130

PATIENT
  Age: 71 Month
  Sex: Male
  Weight: 67.5 kg

DRUGS (3)
  1. INTERFERON ALFA-2A [Suspect]
     Active Substance: INTERFERON ALFA-2A
     Indication: METASTATIC RENAL CELL CARCINOMA
     Route: 065
     Dates: start: 20101209, end: 20110103
  2. FENTANYL CITRATE. [Suspect]
     Active Substance: FENTANYL CITRATE
     Indication: PRODUCT USED FOR UNKNOWN INDICATION
     Route: 065
  3. SIMVASTATIN. [Suspect]
     Active Substance: SIMVASTATIN
     Indication: METASTATIC RENAL CELL CARCINOMA
     Dosage: ACCORDINGLY 650 MG, APPLICATION RECEIVED ON 9 DEC 2010 AND 23 DEC 2010
     Route: 042

REACTIONS (3)
  - Confusional state [Recovered/Resolved]
  - Overdose [Unknown]
  - Gait disturbance [Recovered/Resolved]

NARRATIVE: CASE EVENT DATE: 20101228
